FAERS Safety Report 10261105 (Version 1)
Quarter: 2014Q2

REPORT INFORMATION
  Report Type: Spontaneous
  Country: US (occurrence: US)
  Receive Date: 20140626
  Receipt Date: 20140626
  Transmission Date: 20141212
  Serious: Yes (Hospitalization, Other)
  Sender: FDA-Public Use
  Company Number: US-AMGEN-USASP2014047515

PATIENT
  Age: 34 Year
  Sex: Female

DRUGS (1)
  1. ENBREL [Suspect]
     Indication: PSORIASIS
     Dosage: 50 MG, QWK
     Route: 065
     Dates: start: 20050120

REACTIONS (11)
  - Delivery [Recovered/Resolved]
  - Caesarean section [Recovered/Resolved]
  - Pyrexia [Recovered/Resolved]
  - Uterine infection [Recovered/Resolved]
  - Contusion [Not Recovered/Not Resolved]
  - Mass [Not Recovered/Not Resolved]
  - Joint injury [Not Recovered/Not Resolved]
  - Skin discolouration [Not Recovered/Not Resolved]
  - Rhinorrhoea [Recovered/Resolved]
  - Cough [Recovered/Resolved]
  - Skin plaque [Not Recovered/Not Resolved]
